FAERS Safety Report 7557404-8 (Version None)
Quarter: 2011Q2

REPORT INFORMATION
  Report Type: 
  Country: None (occurrence: None)
  Receive Date: 20110620
  Receipt Date: 20110608
  Transmission Date: 20111010
  Serious: Yes (Other)
  Sender: FDA-Public Use
  Company Number: PHHY2011DE50127

PATIENT
  Age: 55 Year
  Sex: Female

DRUGS (3)
  1. PAMIDRONATE DISODIUM [Suspect]
     Dosage: UNK
     Dates: start: 20000323, end: 20021101
  2. ZOLEDRONIC ACID [Suspect]
     Dosage: UNK
     Dates: start: 20021126, end: 20030225
  3. CHEMOTHERAPEUTICS NOS [Concomitant]

REACTIONS (1)
  - OSTEONECROSIS OF JAW [None]
